FAERS Safety Report 8024925-3 (Version None)
Quarter: 2012Q1

REPORT INFORMATION
  Report Type: 
  Country: None (occurrence: None)
  Receive Date: 20120105
  Receipt Date: 20111230
  Transmission Date: 20120608
  Serious: Yes (Death)
  Sender: FDA-Public Use
  Company Number: FR-GLAXOSMITHKLINE-A0959956A

PATIENT
  Sex: Male

DRUGS (2)
  1. CHANTIX [Suspect]
     Indication: SMOKING CESSATION THERAPY
     Route: 048
     Dates: start: 20080526
  2. NICORETTE [Suspect]
     Indication: SMOKING CESSATION THERAPY
     Route: 002
     Dates: start: 20080526

REACTIONS (6)
  - STRESS [None]
  - MYOCARDITIS [None]
  - PALPITATIONS [None]
  - MYOCARDIAL FIBROSIS [None]
  - CARDIAC FAILURE [None]
  - IRRITABILITY [None]
